FAERS Safety Report 19495950 (Version 1)
Quarter: 2021Q3

REPORT INFORMATION
  Report Type: Spontaneous
  Country: AT (occurrence: AT)
  Receive Date: 20210706
  Receipt Date: 20210706
  Transmission Date: 20211014
  Serious: Yes (Other)
  Sender: FDA-Public Use
  Company Number: AT-TEVA-2021-AT-1929413

PATIENT
  Age: 47 Year
  Sex: Female

DRUGS (13)
  1. TEMESTA [Concomitant]
     Dosage: 3.75 MG
     Dates: start: 20210318, end: 20210321
  2. SEROQUEL [Suspect]
     Active Substance: QUETIAPINE FUMARATE
     Dosage: 200 MG
     Route: 065
     Dates: start: 20210331
  3. ZOLPIDEM [Concomitant]
     Active Substance: ZOLPIDEM TARTRATE
     Dosage: 10 MG
     Dates: start: 20210327, end: 20210327
  4. MIRTAZAPIN [Suspect]
     Active Substance: MIRTAZAPINE
     Dosage: 30 MG
     Route: 065
     Dates: start: 20210321, end: 20210322
  5. SEROQUEL [Suspect]
     Active Substance: QUETIAPINE FUMARATE
     Dosage: 250 MG
     Route: 065
     Dates: start: 20210329, end: 20210330
  6. MIRTAZAPIN [Suspect]
     Active Substance: MIRTAZAPINE
     Dosage: 45 MG
     Route: 065
     Dates: start: 20210323, end: 20210328
  7. SEROQUEL [Suspect]
     Active Substance: QUETIAPINE FUMARATE
     Dosage: 150 MG
     Route: 065
     Dates: start: 20210325, end: 20210328
  8. SEROQUEL [Suspect]
     Active Substance: QUETIAPINE FUMARATE
     Dosage: 75 MG
     Route: 065
     Dates: start: 20210323, end: 20210324
  9. MIRTAZAPIN [Suspect]
     Active Substance: MIRTAZAPINE
     Dosage: 15 MG
     Route: 065
     Dates: start: 20210318, end: 20210320
  10. THYREX [Concomitant]
     Active Substance: LEVOTHYROXINE SODIUM
     Dosage: 75 MCG
     Dates: start: 2016
  11. TEMESTA [Concomitant]
     Dosage: 2.5 MG
     Dates: start: 20210322
  12. SEROQUEL [Suspect]
     Active Substance: QUETIAPINE FUMARATE
     Dosage: 50 MG
     Route: 065
     Dates: start: 20210322, end: 20210322
  13. SEROQUEL [Suspect]
     Active Substance: QUETIAPINE FUMARATE
     Dosage: 50 MG
     Route: 065
     Dates: start: 20210322

REACTIONS (1)
  - Restless legs syndrome [Recovered/Resolved]

NARRATIVE: CASE EVENT DATE: 20210327
